FAERS Safety Report 7521675-4 (Version None)
Quarter: 2011Q2

REPORT INFORMATION
  Report Type: 
  Country: None (occurrence: None)
  Receive Date: 20110524
  Receipt Date: 20110422
  Transmission Date: 20111010
  Serious: Yes (Death)
  Sender: FDA-Public Use
  Company Number: 201110479

PATIENT
  Sex: Male

DRUGS (4)
  1. BUPIVACINE [Concomitant]
  2. LIORESAL [Suspect]
     Indication: MUSCLE SPASTICITY
     Dosage: MCG, DAILY, INTRATHECAL
     Route: 037
  3. MORPHINE [Concomitant]
  4. DROPERIDOL [Concomitant]

REACTIONS (1)
  - CONDITION AGGRAVATED [None]
